APPROVED DRUG PRODUCT: DARIFENACIN HYDROBROMIDE
Active Ingredient: DARIFENACIN HYDROBROMIDE
Strength: EQ 7.5MG BASE
Dosage Form/Route: TABLET, EXTENDED RELEASE;ORAL
Application: A207681 | Product #001 | TE Code: AB
Applicant: ALEMBIC PHARMACEUTICALS LTD
Approved: Dec 8, 2017 | RLD: No | RS: No | Type: RX